FAERS Safety Report 5471587-5 (Version None)
Quarter: 2007Q3

REPORT INFORMATION
  Report Type: 
  Country: None (occurrence: None)
  Receive Date: 20070928
  Receipt Date: 20070125
  Transmission Date: 20080115
  Serious: No
  Sender: FDA-Public Use
  Company Number: US-BRISTOL-MYERS SQUIBB COMPANY-13657267

PATIENT
  Age: 84 Year
  Sex: Female

DRUGS (3)
  1. DEFINITY [Suspect]
     Indication: STRESS ECHOCARDIOGRAM
     Route: 042
  2. DOBUTAMINE HCL [Concomitant]
  3. DARVOCET [Concomitant]

REACTIONS (1)
  - BACK PAIN [None]
